FAERS Safety Report 10989700 (Version 1)
Quarter: 2015Q2

REPORT INFORMATION
  Report Type: Spontaneous
  Country: IT (occurrence: IT)
  Receive Date: 20150406
  Receipt Date: 20150406
  Transmission Date: 20150821
  Serious: Yes (Other)
  Sender: FDA-Public Use
  Company Number: IT-SUN PHARMACEUTICAL INDUSTRIES LTD-2015RR-95099

PATIENT
  Age: 31 Year
  Sex: Male

DRUGS (5)
  1. PARACETAMOL [Suspect]
     Active Substance: ACETAMINOPHEN
     Indication: INFLUENZA
     Dosage: 1000 MG, DAILY
     Route: 048
     Dates: start: 20140116, end: 20140118
  2. IRBESARTAN. [Concomitant]
     Active Substance: IRBESARTAN
     Indication: PRODUCT USED FOR UNKNOWN INDICATION
     Dosage: UNK
     Route: 065
  3. AMOXICILLINA E ACIDO CLAVULANICO [Suspect]
     Active Substance: AMOXICILLIN\CLAVULANIC ACID
     Indication: INFLUENZA
     Dosage: 2 G, DAILY
     Route: 048
     Dates: start: 20140116, end: 20140118
  4. ACETILCISTEINA [Suspect]
     Active Substance: ACETYLCYSTEINE
     Indication: INFLUENZA
     Dosage: 2 UNITS, DAILY
     Route: 048
     Dates: start: 20140116, end: 20140118
  5. ATENOLOL. [Concomitant]
     Active Substance: ATENOLOL
     Indication: PRODUCT USED FOR UNKNOWN INDICATION
     Dosage: UNK
     Route: 065

REACTIONS (2)
  - Loss of consciousness [Recovering/Resolving]
  - Malaise [Recovering/Resolving]

NARRATIVE: CASE EVENT DATE: 20140118
